FAERS Safety Report 9672317 (Version 2)
Quarter: 2014Q1

REPORT INFORMATION
  Report Type: Spontaneous
  Country: CZ (occurrence: None)
  Receive Date: 20131105
  Receipt Date: 20140214
  Transmission Date: 20141002
  Serious: Yes (Other)
  Sender: FDA-Public Use
  Company Number: 2013AP009470

PATIENT
  Age: 78 Year
  Sex: Male

DRUGS (5)
  1. CLOPIDOGREL (CLOPIDOGREL) [Suspect]
  2. PERINDOPRIL (PERINDOPRIL) [Suspect]
  3. ACETYLSALICYLIC ACID (ACETYLSALICYLIC ACID) [Suspect]
  4. METOPROLOL (METOPROLOL) [Suspect]
  5. ATORVASTATIN (ATORVASTATIN) [Suspect]

REACTIONS (3)
  - Thrombosis in device [None]
  - Platelet aggregation increased [None]
  - Drug ineffective [None]
